FAERS Safety Report 6793067-7 (Version None)
Quarter: 2010Q2

REPORT INFORMATION
  Report Type: 
  Country: None (occurrence: None)
  Receive Date: 20100624
  Receipt Date: 20081113
  Transmission Date: 20101027
  Serious: No
  Sender: FDA-Public Use
  Company Number: US-PFIZER INC-2008097101

PATIENT
  Sex: Male

DRUGS (5)
  1. GEODON [Suspect]
     Indication: BIPOLAR DISORDER
     Route: 048
  2. DRUG, UNSPECIFIED [Suspect]
  3. LITHIUM [Concomitant]
  4. KLONOPIN [Concomitant]
  5. EFFEXOR [Concomitant]

REACTIONS (3)
  - DYSKINESIA [None]
  - HYPERHIDROSIS [None]
  - MEDICATION ERROR [None]
